FAERS Safety Report 7683087-2 (Version None)
Quarter: 2011Q3

REPORT INFORMATION
  Report Type: 
  Country: None (occurrence: None)
  Receive Date: 20110815
  Receipt Date: 20110802
  Transmission Date: 20111222
  Serious: Yes (Hospitalization, Other)
  Sender: FDA-Public Use
  Company Number: CA-ELI_LILLY_AND_COMPANY-CA201108000709

PATIENT
  Sex: Male

DRUGS (11)
  1. ZYPREXA [Suspect]
     Indication: PSYCHOTIC DISORDER
     Dosage: 5 MG, QD
  2. ZOLOFT [Concomitant]
  3. TRAMADOL HCL [Concomitant]
  4. ZYPREXA ZYDIS [Suspect]
     Indication: PSYCHOTIC DISORDER
     Dosage: 5 MG, EACH EVENING
  5. ELAVIL [Concomitant]
  6. ZYPREXA [Suspect]
     Dosage: 25 MG, EACH EVENING
  7. ZYPREXA [Suspect]
     Dosage: 2.5 MG, EACH EVENING
  8. ZYPREXA [Suspect]
     Dosage: 10 MG, EACH EVENING
  9. ZYPREXA [Suspect]
     Dosage: 7.5 MG, EACH EVENING
  10. OXAZEPAM [Concomitant]
  11. ZYPREXA [Suspect]
     Dosage: 15 MG, EACH EVENING

REACTIONS (6)
  - DYSLIPIDAEMIA [None]
  - HYPERTENSION [None]
  - OVERDOSE [None]
  - DIABETES MELLITUS [None]
  - WEIGHT INCREASED [None]
  - CEREBROVASCULAR ACCIDENT [None]
